FAERS Safety Report 7439194-2 (Version None)
Quarter: 2011Q2

REPORT INFORMATION
  Report Type: 
  Country: None (occurrence: None)
  Receive Date: 20110427
  Receipt Date: 20110425
  Transmission Date: 20111010
  Serious: Yes (Other)
  Sender: FDA-Public Use
  Company Number: US-AMGEN-USASP2011020491

PATIENT
  Weight: 111 kg

DRUGS (7)
  1. LASIX [Concomitant]
     Dosage: 20 MG, QD
  2. NPLATE [Suspect]
     Indication: IDIOPATHIC THROMBOCYTOPENIC PURPURA
     Dosage: UNK UNK, QWK
     Route: 058
     Dates: start: 20101222
  3. ALBUTEROL SULFATE [Concomitant]
  4. GLYBURIDE [Concomitant]
     Dosage: 5 MG, QD
  5. ASPIRIN [Concomitant]
     Dosage: 81 MG, QD
  6. LISINOPRIL AND HYDROCHLOROTHIAZIDE [Concomitant]
  7. AZITHROMYCIN 0.5-ETHANOL MONOHYDRATE [Concomitant]

REACTIONS (4)
  - CARDIAC DISORDER [None]
  - WEIGHT DECREASED [None]
  - THROMBOCYTOPENIA [None]
  - ATRIAL FIBRILLATION [None]
